APPROVED DRUG PRODUCT: LAMOTRIGINE
Active Ingredient: LAMOTRIGINE
Strength: 25MG
Dosage Form/Route: TABLET, EXTENDED RELEASE;ORAL
Application: A200672 | Product #001 | TE Code: AB
Applicant: ACTAVIS ELIZABETH LLC
Approved: Oct 17, 2013 | RLD: No | RS: No | Type: RX